FAERS Safety Report 9753217 (Version 1)
Quarter: 2013Q4

REPORT INFORMATION
  Report Type: Spontaneous
  Country: US (occurrence: US)
  Receive Date: 20131213
  Receipt Date: 20131213
  Transmission Date: 20140711
  Serious: No
  Sender: FDA-Public Use
  Company Number: US-GILEAD-2010-0027636

PATIENT
  Sex: Female
  Weight: 59.42 kg

DRUGS (8)
  1. LETAIRIS [Suspect]
     Indication: PULMONARY ARTERIAL HYPERTENSION
     Route: 048
     Dates: start: 20100127, end: 20100304
  2. REVATIO [Concomitant]
  3. CARDIZEM [Concomitant]
  4. LANOXIN [Concomitant]
  5. ALDACTONE [Concomitant]
  6. LASIX [Concomitant]
  7. LYRICA [Concomitant]
  8. POTASSIUM CHLORIDE [Concomitant]

REACTIONS (1)
  - Local swelling [Unknown]
